FAERS Safety Report 24828346 (Version 1)
Quarter: 2025Q1

REPORT INFORMATION
  Report Type: Spontaneous
  Country: US (occurrence: US)
  Receive Date: 20250109
  Receipt Date: 20250109
  Transmission Date: 20250409
  Serious: No
  Sender: ROCHE
  Company Number: US-ROCHE-10000172715

PATIENT
  Age: 74 Year
  Sex: Female

DRUGS (1)
  1. ACTEMRA ACTPEN [Suspect]
     Active Substance: TOCILIZUMAB
     Indication: Rheumatoid arthritis
     Route: 058
     Dates: start: 202309

REACTIONS (5)
  - Headache [Unknown]
  - Sinus congestion [Unknown]
  - Sneezing [Unknown]
  - Lower respiratory tract congestion [Unknown]
  - Upper-airway cough syndrome [Unknown]
